FAERS Safety Report 5480312-3 (Version None)
Quarter: 2007Q4

REPORT INFORMATION
  Report Type: 
  Country: None (occurrence: None)
  Receive Date: 20071009
  Receipt Date: 20071001
  Transmission Date: 20080405
  Serious: Yes (Hospitalization)
  Sender: FDA-Public Use
  Company Number: FR-ABBOTT-04P-056-0250915-00

PATIENT
  Sex: Male

DRUGS (37)
  1. RITONAVIR SOFT GELATIN CAPSULES [Suspect]
     Indication: HIV INFECTION
     Route: 048
     Dates: start: 20040105, end: 20040210
  2. LAMIVUDINE [Concomitant]
     Indication: HIV INFECTION
     Route: 048
     Dates: start: 20040105, end: 20040209
  3. VIREAD [Concomitant]
     Indication: HIV INFECTION
     Route: 048
     Dates: start: 20040105, end: 20040209
  4. FUZEON [Concomitant]
     Indication: HIV INFECTION
     Route: 058
     Dates: start: 20040105, end: 20040209
  5. COTRIM [Concomitant]
     Indication: ANTIFUNGAL PROPHYLAXIS
     Route: 048
  6. OXYCODONE HYDROCHLORIDE [Concomitant]
     Indication: VASCULITIS NECROTISING
     Route: 048
     Dates: end: 20040210
  7. ASPIRIN [Concomitant]
     Indication: THROMBOSIS PROPHYLAXIS
     Route: 048
     Dates: end: 20031224
  8. CLONAZEPAM [Concomitant]
     Indication: VASCULITIS NECROTISING
     Route: 048
     Dates: end: 20040112
  9. DAPSONE [Concomitant]
     Indication: VASCULITIS NECROTISING
     Route: 048
     Dates: end: 20031215
  10. FOLIC ACID [Concomitant]
     Indication: THALASSAEMIA
     Route: 048
     Dates: end: 20040210
  11. TOCOPHERYL ACETATE [Concomitant]
     Indication: HYPERCHOLESTEROLAEMIA
     Route: 048
     Dates: end: 20031201
  12. LAMIVUDINE [Concomitant]
     Route: 048
     Dates: start: 20040105
  13. TENOFOVIR [Concomitant]
     Indication: HIV INFECTION
     Route: 048
     Dates: start: 20040105
  14. ENFUVIRTIDE [Concomitant]
     Indication: HIV INFECTION
     Dates: start: 20040105
  15. MORPHINE SULFATE [Concomitant]
     Indication: NECROSIS
     Route: 048
     Dates: end: 20040210
  16. CLOMIPRAMINE HYDROCHLORIDE [Concomitant]
     Indication: DEPRESSION
     Route: 048
     Dates: start: 20040309
  17. CLOMIPRAMINE HYDROCHLORIDE [Concomitant]
     Route: 048
     Dates: start: 20040222, end: 20040309
  18. CACIT [Concomitant]
     Indication: OSTEOPOROSIS PROPHYLAXIS
     Route: 048
     Dates: start: 20031224, end: 20040210
  19. POTASSIUM CHLORIDE [Concomitant]
     Indication: DRUG USE FOR UNKNOWN INDICATION
     Route: 048
     Dates: start: 20040201
  20. NICARDIPINE HYDROCHLORIDE [Concomitant]
     Indication: HYPERTENSION
     Route: 048
     Dates: start: 20040201, end: 20040316
  21. PERINDOPRIL ERBUMINE [Concomitant]
     Indication: HYPERTENSION
     Route: 048
     Dates: start: 20040210
  22. PREDNISONE [Concomitant]
     Indication: SKIN NECROSIS
     Route: 048
     Dates: start: 20040216
  23. CLONAZEPAM [Concomitant]
     Indication: NECROSIS
     Route: 048
     Dates: start: 20040216
  24. CITALOPRAM HYDROBROMIDE [Concomitant]
     Indication: DEPRESSION
     Route: 048
     Dates: start: 20040112
  25. MORPHINE SULFATE [Concomitant]
     Indication: PAIN
     Route: 048
     Dates: start: 20040217
  26. MORPHINE SULFATE [Concomitant]
     Route: 048
     Dates: start: 20040216
  27. VALACYCLOVIR HCL [Concomitant]
     Indication: ANTIVIRAL PROPHYLAXIS
     Route: 048
     Dates: start: 20040222
  28. PREDNISONE [Concomitant]
     Route: 048
     Dates: start: 20040516
  29. PREDNISONE [Concomitant]
     Indication: OEDEMA
     Route: 048
     Dates: start: 20040505, end: 20040516
  30. PREDNISONE [Concomitant]
     Route: 048
     Dates: start: 20040424, end: 20040505
  31. PREDNISONE [Concomitant]
     Route: 048
     Dates: start: 20040414, end: 20040424
  32. PREDNISONE [Concomitant]
     Route: 048
     Dates: start: 20040119, end: 20040210
  33. PREDNISONE [Concomitant]
     Route: 048
     Dates: start: 20040112, end: 20040118
  34. OMEPRAZOLE [Concomitant]
     Indication: PAIN
     Route: 048
     Dates: start: 20040518
  35. SECTRAL [Concomitant]
     Indication: HYPERTENSION
     Route: 048
     Dates: start: 20040525
  36. PRAVASTATIN SODIUM [Concomitant]
     Indication: MYOCARDIAL INFARCTION
     Route: 048
     Dates: start: 20040518
  37. VALACYCLOVIR HCL [Concomitant]
     Route: 048
     Dates: start: 20040501

REACTIONS (2)
  - BLOOD DISORDER [None]
  - MYOCARDITIS [None]
